FAERS Safety Report 6681234-2 (Version None)
Quarter: 2010Q2

REPORT INFORMATION
  Report Type: 
  Country: None (occurrence: None)
  Receive Date: 20100414
  Receipt Date: 20090526
  Transmission Date: 20101027
  Serious: No
  Sender: FDA-Public Use
  Company Number: US-KINGPHARMUSA00001-K200900641

PATIENT
  Sex: Female
  Weight: 123.81 kg

DRUGS (1)
  1. SKELAXIN [Suspect]
     Indication: BACK PAIN
     Dosage: 800 MG, QID
     Route: 048
     Dates: start: 20081201, end: 20090101

REACTIONS (2)
  - ASTHENIA [None]
  - PARAESTHESIA [None]
